FAERS Safety Report 6384538-6 (Version None)
Quarter: 2009Q3

REPORT INFORMATION
  Report Type: 
  Country: None (occurrence: None)
  Receive Date: 20090924
  Receipt Date: 20090303
  Transmission Date: 20100115
  Serious: No
  Sender: FDA-Public Use
  Company Number: US-CVT-090024

PATIENT
  Age: 67 Year
  Sex: Female

DRUGS (3)
  1. RANEXA [Suspect]
     Indication: ANGINA PECTORIS
     Dosage: 500 MG, BID, ORAL; 1000 MG, BID
     Route: 048
     Dates: start: 20081101, end: 20090125
  2. RANEXA [Suspect]
     Indication: ANGINA PECTORIS
     Dosage: 500 MG, BID, ORAL; 1000 MG, BID
     Route: 048
     Dates: start: 20080126
  3. DILTIAZEM [Suspect]
     Indication: DRUG USE FOR UNKNOWN INDICATION
     Dosage: 180 MG, BID

REACTIONS (3)
  - DRUG INTERACTION [None]
  - VISION BLURRED [None]
  - VISUAL IMPAIRMENT [None]
